FAERS Safety Report 24550678 (Version 1)
Quarter: 2024Q4

REPORT INFORMATION
  Report Type: Spontaneous
  Country: US (occurrence: None)
  Receive Date: 20241025
  Receipt Date: 20241025
  Transmission Date: 20250115
  Serious: Yes (Hospitalization)
  Sender: Public
  Company Number: None

PATIENT
  Sex: Female

DRUGS (2)
  1. SILDENAFIL CITRATE [Suspect]
     Active Substance: SILDENAFIL CITRATE
     Indication: Pulmonary arterial hypertension
     Dosage: FREQUENCY : 3 TIMES A DAY;?
     Route: 048
     Dates: start: 202406
  2. TORSEMIDE [Suspect]
     Active Substance: TORSEMIDE
     Indication: Pulmonary arterial hypertension
     Dosage: 20MG 3 TIMES A DAY PO
     Dates: start: 202407

REACTIONS (5)
  - Ear discomfort [None]
  - Maternal exposure during pregnancy [None]
  - Cardiac failure [None]
  - Caesarean section [None]
  - Hypoacusis [None]
